FAERS Safety Report 11338171 (Version 1)
Quarter: 2015Q3

REPORT INFORMATION
  Report Type: Spontaneous
  Country: US (occurrence: US)
  Receive Date: 20150803
  Receipt Date: 20150803
  Transmission Date: 20151125
  Serious: Yes (Other)
  Sender: FDA-Public Use
  Company Number: US-ELI_LILLY_AND_COMPANY-US201007004367

PATIENT
  Age: 43 Year
  Sex: Male
  Weight: 98.41 kg

DRUGS (1)
  1. ZYPREXA [Suspect]
     Active Substance: OLANZAPINE
     Indication: BIPOLAR I DISORDER
     Dosage: 12.5 MG, DAILY (1/D)
     Route: 065
     Dates: start: 2003, end: 201006

REACTIONS (6)
  - Constipation [Unknown]
  - Abdominal discomfort [Recovering/Resolving]
  - Abdominal distension [Recovering/Resolving]
  - Weight increased [Unknown]
  - Flatulence [Recovering/Resolving]
  - Gastroenteritis viral [Unknown]

NARRATIVE: CASE EVENT DATE: 201007
